FAERS Safety Report 6939985-8 (Version None)
Quarter: 2010Q3

REPORT INFORMATION
  Report Type: 
  Country: None (occurrence: None)
  Receive Date: 20100825
  Receipt Date: 20100814
  Transmission Date: 20110219
  Serious: Yes (Other)
  Sender: FDA-Public Use
  Company Number: CA-JNJFOC-20100602852

PATIENT
  Sex: Female
  Weight: 60 kg

DRUGS (4)
  1. REMICADE [Suspect]
     Indication: RHEUMATOID ARTHRITIS
     Route: 042
  2. REMICADE [Suspect]
     Route: 042
  3. BENADRYL [Concomitant]
     Route: 048
  4. ACETAMINOPHEN [Concomitant]
     Route: 048

REACTIONS (2)
  - LICHEN PLANUS [None]
  - ORAL FUNGAL INFECTION [None]
